FAERS Safety Report 19768689 (Version 1)
Quarter: 2021Q3

REPORT INFORMATION
  Report Type: Spontaneous
  Country: US (occurrence: US)
  Receive Date: 20210831
  Receipt Date: 20210831
  Transmission Date: 20211014
  Serious: Yes (Death)
  Sender: FDA-Public Use
  Company Number: None

PATIENT
  Age: 87 Year
  Sex: Female

DRUGS (2)
  1. PROLIA [Suspect]
     Active Substance: DENOSUMAB
     Indication: OSTEOARTHRITIS
     Dosage: ?          OTHER FREQUENCY:EVERY 6 MO;?
     Route: 058
     Dates: start: 20210324, end: 20210830
  2. FREESTYLE TES LITE [Concomitant]
     Dates: start: 20210513

REACTIONS (1)
  - Death [None]

NARRATIVE: CASE EVENT DATE: 20210830
